FAERS Safety Report 7997498-9 (Version None)
Quarter: 2011Q4

REPORT INFORMATION
  Report Type: 
  Country: None (occurrence: None)
  Receive Date: 20111221
  Receipt Date: 20111221
  Transmission Date: 20120403
  Serious: Yes (Life-Threatening, Hospitalization, Other)
  Sender: FDA-Public Use
  Company Number: None

PATIENT
  Age: 42 Year
  Sex: Female
  Weight: 90.718 kg

DRUGS (2)
  1. TOPRIAMATE [Concomitant]
     Indication: MAJOR DEPRESSION
     Dosage: 25MG
     Route: 048
     Dates: start: 20110912, end: 20111220
  2. SEROQUEL [Suspect]
     Indication: BIPOLAR II DISORDER
     Dosage: 300MG
     Route: 048
     Dates: start: 20060201, end: 20111220

REACTIONS (1)
  - PULMONARY EMBOLISM [None]
